FAERS Safety Report 9428994 (Version 2)
Quarter: 2013Q3

REPORT INFORMATION
  Report Type: Spontaneous
  Country: US (occurrence: US)
  Receive Date: 20130730
  Receipt Date: 20130829
  Transmission Date: 20140515
  Serious: No
  Sender: FDA-Public Use
  Company Number: US-009507513-1307USA013633

PATIENT
  Age: 81 Year
  Sex: Male
  Weight: 74.83 kg

DRUGS (8)
  1. JANUVIA [Suspect]
     Indication: TYPE 2 DIABETES MELLITUS
     Dosage: HALF OF 100 MG TABLET, TAKE THIS DOSE ONCE DAILY/25MG TOTAL DAILY DOSE
     Route: 048
     Dates: start: 20130719, end: 20130720
  2. METFORMIN [Concomitant]
  3. COZAAR [Concomitant]
  4. OXYBUTYNIN [Concomitant]
  5. ATORVASTATIN [Concomitant]
  6. OMEPRAZOLE [Concomitant]
  7. FERROUS SULFATE [Concomitant]
  8. ASCORBIC ACID [Concomitant]

REACTIONS (2)
  - Abdominal pain [Recovered/Resolved]
  - Wrong technique in drug usage process [Unknown]
